FAERS Safety Report 18119085 (Version 2)
Quarter: 2020Q3

REPORT INFORMATION
  Report Type: Spontaneous
  Country: CN (occurrence: CN)
  Receive Date: 20200806
  Receipt Date: 20200812
  Transmission Date: 20201103
  Serious: Yes (Other)
  Sender: FDA-Public Use
  Company Number: CN-ROCHE-2651412

PATIENT
  Age: 36 Year
  Sex: Female

DRUGS (14)
  1. MABTHERA [Suspect]
     Active Substance: RITUXIMAB
     Indication: DIFFUSE LARGE B-CELL LYMPHOMA
     Route: 065
     Dates: start: 20171128
  2. GEMCITABINE. [Concomitant]
     Active Substance: GEMCITABINE
     Indication: DIFFUSE LARGE B-CELL LYMPHOMA
     Dosage: 1.5 G
     Dates: start: 20180227
  3. DEXAMETHASONE. [Concomitant]
     Active Substance: DEXAMETHASONE
     Indication: DIFFUSE LARGE B-CELL LYMPHOMA
     Dates: start: 20171128, end: 20171222
  4. PREDNISONE. [Concomitant]
     Active Substance: PREDNISONE
     Indication: DIFFUSE LARGE B-CELL LYMPHOMA
     Dates: start: 20171222
  5. IBRUTINIB [Concomitant]
     Active Substance: IBRUTINIB
     Indication: DIFFUSE LARGE B-CELL LYMPHOMA
     Dates: start: 2018
  6. OXALIPLATIN. [Concomitant]
     Active Substance: OXALIPLATIN
     Indication: DIFFUSE LARGE B-CELL LYMPHOMA
     Dates: start: 20180227
  7. METHOTREXATE. [Concomitant]
     Active Substance: METHOTREXATE
  8. CELLCEPT [Suspect]
     Active Substance: MYCOPHENOLATE MOFETIL\MYCOPHENOLATE MOFETIL HYDROCHLORIDE
     Indication: GRAFT VERSUS HOST DISEASE
     Route: 065
     Dates: start: 20180101
  9. PIRARUBICIN [Concomitant]
     Active Substance: PIRARUBICIN
  10. LENALIDOMIDE [Concomitant]
     Active Substance: LENALIDOMIDE
     Indication: DIFFUSE LARGE B-CELL LYMPHOMA
     Route: 065
  11. CYTARABINE. [Concomitant]
     Active Substance: CYTARABINE
     Indication: DIFFUSE LARGE B-CELL LYMPHOMA
     Dates: start: 20180409
  12. VINORELBINE [Concomitant]
     Active Substance: VINORELBINE TARTRATE
  13. CYCLOPHOSPHAMIDE. [Concomitant]
     Active Substance: CYCLOPHOSPHAMIDE
  14. CICLOSPORIN [Concomitant]
     Active Substance: CYCLOSPORINE

REACTIONS (4)
  - Diarrhoea [Unknown]
  - Ocular icterus [Unknown]
  - Pyrexia [Unknown]
  - Intestinal obstruction [Unknown]
